FAERS Safety Report 8531711-4 (Version None)
Quarter: 2012Q3

REPORT INFORMATION
  Report Type: 
  Country: None (occurrence: None)
  Receive Date: 20120723
  Receipt Date: 20120713
  Transmission Date: 20120928
  Serious: Yes (Other)
  Sender: FDA-Public Use
  Company Number: US-ASTRAZENECA-2012SE49106

PATIENT
  Age: 74 Year
  Sex: Female

DRUGS (2)
  1. HORMONES [Suspect]
     Route: 065
  2. NEXIUM [Suspect]
     Route: 048

REACTIONS (1)
  - BREAST CANCER [None]
